FAERS Safety Report 11923748 (Version 1)
Quarter: 2016Q1

REPORT INFORMATION
  Report Type: Spontaneous
  Country: US (occurrence: US)
  Receive Date: 20160118
  Receipt Date: 20160118
  Transmission Date: 20160526
  Serious: No
  Sender: FDA-Public Use
  Company Number: US-PFIZER INC-2016012369

PATIENT
  Age: 57 Year
  Sex: Female
  Weight: 62.6 kg

DRUGS (2)
  1. VFEND [Suspect]
     Active Substance: VORICONAZOLE
     Indication: INFECTION PROPHYLAXIS
     Dosage: UNK, 2X/DAY
     Route: 042
     Dates: start: 201511
  2. VFEND [Suspect]
     Active Substance: VORICONAZOLE
     Dosage: UNK, 1X/DAY
     Route: 042
     Dates: start: 2015

REACTIONS (2)
  - Visual impairment [Recovering/Resolving]
  - Drug hypersensitivity [Unknown]

NARRATIVE: CASE EVENT DATE: 201511
